FAERS Safety Report 7917109-8 (Version None)
Quarter: 2011Q4

REPORT INFORMATION
  Report Type: 
  Country: None (occurrence: None)
  Receive Date: 20111114
  Receipt Date: 20111025
  Transmission Date: 20120403
  Serious: Yes (Other)
  Sender: FDA-Public Use
  Company Number: US-ACCORD-011202

PATIENT
  Age: 68 Year
  Sex: Male
  Weight: 64 kg

DRUGS (11)
  1. CYTARABINE [Suspect]
     Indication: PRODUCT USED FOR UNKNOWN INDICATION
     Dates: start: 20101006, end: 20101009
  2. FLUCONAZOLE [Concomitant]
  3. ETOPOSIDE [Suspect]
     Indication: PRODUCT USED FOR UNKNOWN INDICATION
     Dates: start: 20101006, end: 20101009
  4. CARMUSTINE [Suspect]
     Indication: PRODUCT USED FOR UNKNOWN INDICATION
     Dates: start: 20101006, end: 20101009
  5. MELPHALAN HYDROCHLORIDE [Suspect]
     Indication: PRODUCT USED FOR UNKNOWN INDICATION
     Dates: start: 20101010, end: 20101010
  6. FOLIC ACID [Concomitant]
  7. MULTIVITAMIN(MULTIVITAMIN) [Concomitant]
  8. INOTUZUMAB OZOGAMICIN(INOTUZUMAB OZOGAMICIN) [Suspect]
     Indication: DIFFUSE LARGE B-CELL LYMPHOMA
     Dosage: 2.30-MG, INTRAVENOUS(NOT OTHERWISE SPECIFIED)
     Route: 042
     Dates: start: 20100701, end: 20100805
  9. RITUXIMAB(RITUXIMAB) [Suspect]
     Indication: DIFFUSE LARGE B-CELL LYMPHOMA
     Dosage: 656.00-MG-INTRAVENOUS (NOT OTHERWISE SPECIFIED)
     Route: 042
     Dates: start: 20100728, end: 20100804
  10. ACYCLOVIR [Concomitant]
  11. BACTRIM [Concomitant]

REACTIONS (1)
  - ENGRAFT FAILURE [None]
